FAERS Safety Report 23720905 (Version 1)
Quarter: 2024Q2

REPORT INFORMATION
  Report Type: Spontaneous
  Country: US (occurrence: US)
  Receive Date: 20240409
  Receipt Date: 20240409
  Transmission Date: 20240716
  Serious: Yes (Hospitalization, Other)
  Sender: FDA-Public Use
  Company Number: US-HALEON-USCH2024AMR016153

PATIENT
  Age: 41 Year
  Sex: Male

DRUGS (2)
  1. TERBINAFINE [Suspect]
     Active Substance: TERBINAFINE
     Indication: Onychomycosis
     Dosage: UNK
  2. TERBINAFINE [Suspect]
     Active Substance: TERBINAFINE

REACTIONS (8)
  - Jaundice [Unknown]
  - Pruritus [Unknown]
  - Drug-induced liver injury [Unknown]
  - Faeces pale [Unknown]
  - Abdominal pain upper [Unknown]
  - Ocular icterus [Unknown]
  - Cholestasis [Unknown]
  - Condition aggravated [Unknown]
